FAERS Safety Report 7620236-6 (Version None)
Quarter: 2011Q3

REPORT INFORMATION
  Report Type: 
  Country: None (occurrence: None)
  Receive Date: 20110719
  Receipt Date: 20110707
  Transmission Date: 20111222
  Serious: Yes (Hospitalization)
  Sender: FDA-Public Use
  Company Number: PHHO2008US07901

PATIENT
  Sex: Male
  Weight: 86 kg

DRUGS (7)
  1. ZORTRESS [Suspect]
     Dosage: 1.25 MG, BID
     Route: 048
     Dates: start: 20060529, end: 20060619
  2. ZORTRESS [Suspect]
     Dosage: 0.50 MG, BID
     Route: 048
     Dates: start: 20060713, end: 20060829
  3. ZORTRESS [Suspect]
     Indication: HEART TRANSPLANT
     Dosage: 0.5 MG, QD
     Route: 048
     Dates: start: 20060523, end: 20060523
  4. ZORTRESS [Suspect]
     Dosage: 1.5 MG, BID
     Route: 048
     Dates: start: 20060524, end: 20060528
  5. ZORTRESS [Suspect]
     Dosage: 1.50 MG, BID
     Route: 048
     Dates: start: 20060620, end: 20060712
  6. ZORTRESS [Suspect]
     Dosage: 1.0 MG AND 0.5 MG, DAILY
     Route: 048
     Dates: start: 20061018, end: 20061101
  7. ZORTRESS [Suspect]
     Dosage: 1 MG, BID
     Route: 048
     Dates: start: 20060830, end: 20061017

REACTIONS (4)
  - WOUND SECRETION [None]
  - LYMPHOCELE [None]
  - GROIN PAIN [None]
  - SUPERINFECTION [None]
